FAERS Safety Report 6163778-5 (Version None)
Quarter: 2009Q2

REPORT INFORMATION
  Report Type: 
  Country: None (occurrence: None)
  Receive Date: 20090420
  Receipt Date: 20090412
  Transmission Date: 20091009
  Serious: Yes (Other)
  Sender: FDA-Public Use
  Company Number: CHPA2009US09255

PATIENT
  Age: 21 Year
  Sex: Female

DRUGS (3)
  1. THERAFLU WARMING RELIEF COLD + CHEST CONG (NCH)(ACETAMINOPHEN (PARACET [Suspect]
     Indication: NASOPHARYNGITIS
     Dosage: ORAL
     Route: 048
     Dates: start: 20090411
  2. MUCINEX [Suspect]
     Dosage: ORAL
     Route: 048
  3. KEPPRA [Concomitant]

REACTIONS (2)
  - CONVULSION [None]
  - WRONG TECHNIQUE IN DRUG USAGE PROCESS [None]
